FAERS Safety Report 10646809 (Version 2)
Quarter: 2015Q1

REPORT INFORMATION
  Report Type: Spontaneous
  Country: JP (occurrence: JP)
  Receive Date: 20141211
  Receipt Date: 20150121
  Transmission Date: 20150720
  Serious: Yes (Hospitalization, Other)
  Sender: FDA-Public Use
  Company Number: JP-BAYER-2014-180142

PATIENT
  Age: 77 Year
  Sex: Male

DRUGS (5)
  1. BAYASPIRIN [Suspect]
     Active Substance: ASPIRIN
     Indication: CAROTID ARTERY STENOSIS
     Dosage: UNK
     Route: 048
     Dates: start: 2014
  2. PLAVIX [Interacting]
     Active Substance: CLOPIDOGREL BISULFATE
     Indication: CAROTID ARTERY STENOSIS
     Dosage: Q75 MG, QD
     Route: 048
     Dates: start: 20140721
  3. PLAVIX [Interacting]
     Active Substance: CLOPIDOGREL BISULFATE
     Indication: AORTIC ANEURYSM
  4. BAYASPIRIN [Interacting]
     Active Substance: ASPIRIN
     Indication: AORTIC ANEURYSM
     Dosage: UNK
     Route: 048
     Dates: start: 201408
  5. BAYASPIRIN [Interacting]
     Active Substance: ASPIRIN
     Indication: CEREBRAL INFARCTION

REACTIONS (5)
  - Cerebral infarction [Unknown]
  - Labelled drug-drug interaction medication error [None]
  - Oesophageal haemorrhage [Recovering/Resolving]
  - Hemiplegia [Unknown]
  - Anaemia [Recovering/Resolving]

NARRATIVE: CASE EVENT DATE: 20140722
